FAERS Safety Report 15725093 (Version 1)
Quarter: 2018Q4

REPORT INFORMATION
  Report Type: Spontaneous
  Country: US (occurrence: US)
  Receive Date: 20181215
  Receipt Date: 20181215
  Transmission Date: 20190205
  Serious: No
  Sender: FDA-Public Use
  Company Number: US-ASTRAZENECA-2018SF53319

PATIENT
  Sex: Female

DRUGS (1)
  1. SYMBICORT [Suspect]
     Active Substance: BUDESONIDE\FORMOTEROL FUMARATE DIHYDRATE
     Dosage: TAKING SYMBICORT 9 MONTHS
     Route: 055

REACTIONS (6)
  - Overdose [Unknown]
  - Wrong technique in device usage process [Unknown]
  - Insomnia [Unknown]
  - Abnormal dreams [Unknown]
  - Blood pressure increased [Unknown]
  - Product dose omission [Unknown]
